FAERS Safety Report 7592527-9 (Version None)
Quarter: 2011Q3

REPORT INFORMATION
  Report Type: 
  Country: None (occurrence: None)
  Receive Date: 20110706
  Receipt Date: 20110623
  Transmission Date: 20111222
  Serious: Yes (Other)
  Sender: FDA-Public Use
  Company Number: US-ELI_LILLY_AND_COMPANY-US201106007660

PATIENT
  Age: 56 Year
  Sex: Female

DRUGS (4)
  1. PAXIL [Concomitant]
  2. CYMBALTA [Suspect]
     Indication: DEPRESSION
     Dosage: UNK, UNKNOWN
     Dates: start: 20060701
  3. LITHIUM CARBONATE [Concomitant]
     Dosage: 450 MG, UNKNOWN
  4. BUSPAR [Concomitant]

REACTIONS (10)
  - QUALITY OF LIFE DECREASED [None]
  - ADVERSE DRUG REACTION [None]
  - MENTAL DISORDER [None]
  - DEPRESSED MOOD [None]
  - PRURITUS [None]
  - DEPRESSION [None]
  - HYPERSENSITIVITY [None]
  - GLOSSODYNIA [None]
  - SWELLING [None]
  - FEAR [None]
